FAERS Safety Report 4838102-8 (Version None)
Quarter: 2005Q4

REPORT INFORMATION
  Report Type: 
  Country: None (occurrence: None)
  Receive Date: 20051123
  Receipt Date: 20051123
  Transmission Date: 20060501
  Serious: Yes (Life-Threatening)
  Sender: FDA-Public Use
  Company Number: None

PATIENT
  Sex: Male

DRUGS (7)
  1. WARFARIN [Suspect]
     Indication: ANTICOAGULANT THERAPY
     Dosage: 5 MG PO DAILY
     Route: 048
  2. WARFARIN [Suspect]
     Indication: PULMONARY EMBOLISM
     Dosage: 5 MG PO DAILY
     Route: 048
  3. COLACE [Concomitant]
  4. PROTONIX [Concomitant]
  5. BACLOFEN [Concomitant]
  6. ROCEPHIN [Concomitant]
  7. ZOSYN [Concomitant]

REACTIONS (3)
  - ANAEMIA [None]
  - HAEMATURIA [None]
  - INTERNATIONAL NORMALISED RATIO INCREASED [None]
